FAERS Safety Report 4703905-7 (Version None)
Quarter: 2005Q2

REPORT INFORMATION
  Report Type: 
  Country: None (occurrence: None)
  Receive Date: 20050629
  Receipt Date: 20050629
  Transmission Date: 20051028
  Serious: No
  Sender: FDA-Public Use
  Company Number: None

PATIENT
  Age: 36 Year
  Sex: Female
  Weight: 75 kg

DRUGS (3)
  1. ONDANSETRON [Suspect]
     Indication: NAUSEA
     Dosage: 4MG   ONCE   INTRAVENOU
     Route: 042
     Dates: start: 20050214, end: 20050214
  2. DIPHENHYDRAMINE HCL [Suspect]
     Dosage: 25MG   ONCE   INTRAVENOU
     Route: 042
     Dates: start: 20050214, end: 20050214
  3. DILAUDID [Concomitant]

REACTIONS (2)
  - DYSPNOEA [None]
  - DYSTONIA [None]
